FAERS Safety Report 19733570 (Version 2)
Quarter: 2021Q3

REPORT INFORMATION
  Report Type: Report from Study
  Country: AU (occurrence: AU)
  Receive Date: 20210823
  Receipt Date: 20210831
  Transmission Date: 20211014
  Serious: No
  Sender: FDA-Public Use
  Company Number: AU-CELLTRION INC.-2021AU011177

PATIENT

DRUGS (1)
  1. REMSIMA [Suspect]
     Active Substance: INFLIXIMAB
     Indication: CROHN^S DISEASE
     Dosage: 120MG SUBCUT FORTNIGHT (EVERY 2 WEEKS)
     Route: 058
     Dates: start: 20210715

REACTIONS (1)
  - Night sweats [Unknown]
